FAERS Safety Report 21027104 (Version 1)
Quarter: 2022Q2

REPORT INFORMATION
  Report Type: Spontaneous
  Country: US (occurrence: None)
  Receive Date: 20220629
  Receipt Date: 20220629
  Transmission Date: 20220721
  Serious: Yes (Life-Threatening, Hospitalization)
  Sender: FDA-Public Use
  Company Number: None

PATIENT
  Age: 60 Year
  Sex: Female
  Weight: 104.3 kg

DRUGS (1)
  1. CARBOPLATIN [Suspect]
     Active Substance: CARBOPLATIN
     Indication: Lung neoplasm malignant
     Dosage: FREQUENCY : EVERY THREE WEEKS;?
     Route: 041
     Dates: start: 20220511

REACTIONS (11)
  - Infusion related reaction [None]
  - Pruritus [None]
  - Dyspnoea [None]
  - Erythema [None]
  - Erythema [None]
  - Erythema [None]
  - Wheezing [None]
  - Blood pressure decreased [None]
  - Dysphagia [None]
  - Swollen tongue [None]
  - Nausea [None]

NARRATIVE: CASE EVENT DATE: 20220622
